FAERS Safety Report 15350439 (Version 2)
Quarter: 2018Q3

REPORT INFORMATION
  Report Type: Report from Study
  Country: None (occurrence: US)
  Receive Date: 20180905
  Receipt Date: 20180924
  Transmission Date: 20181010
  Serious: Yes (Hospitalization, Other)
  Sender: FDA-Public Use
  Company Number: US-ABBVIE-18K-163-2473281-00

PATIENT
  Age: 70 Year
  Sex: Female
  Weight: 120.31 kg

DRUGS (4)
  1. HUMIRA [Suspect]
     Active Substance: ADALIMUMAB
     Indication: PSORIATIC ARTHROPATHY
     Route: 058
     Dates: start: 2017
  2. LYRICA [Concomitant]
     Active Substance: PREGABALIN
     Indication: PRODUCT USED FOR UNKNOWN INDICATION
  3. METFORMIN [Concomitant]
     Active Substance: METFORMIN HYDROCHLORIDE
     Indication: PRODUCT USED FOR UNKNOWN INDICATION
  4. HUMIRA [Suspect]
     Active Substance: ADALIMUMAB
     Indication: PSORIASIS
     Route: 058
     Dates: start: 201706, end: 2017

REACTIONS (9)
  - Fibrin D dimer increased [Recovered/Resolved]
  - Discomfort [Unknown]
  - Choking [Unknown]
  - Dysphagia [Unknown]
  - Oesophageal stenosis [Recovered/Resolved]
  - Emotional distress [Unknown]
  - Cellulitis [Recovered/Resolved]
  - Troponin increased [Unknown]
  - Apparent death [Unknown]

NARRATIVE: CASE EVENT DATE: 20180721
